FAERS Safety Report 4899433-9 (Version None)
Quarter: 2006Q1

REPORT INFORMATION
  Report Type: 
  Country: None (occurrence: None)
  Receive Date: 20060131
  Receipt Date: 20060120
  Transmission Date: 20060701
  Serious: Yes (Hospitalization)
  Sender: FDA-Public Use
  Company Number: 200600532

PATIENT
  Sex: Female

DRUGS (1)
  1. BOTOX [Suspect]
     Indication: TORTICOLLIS

REACTIONS (5)
  - DEHYDRATION [None]
  - DRUG INEFFECTIVE [None]
  - MIGRAINE [None]
  - ORAL INTAKE REDUCED [None]
  - WEIGHT DECREASED [None]
